FAERS Safety Report 8000962-X (Version None)
Quarter: 2011Q4

REPORT INFORMATION
  Report Type: 
  Country: None (occurrence: None)
  Receive Date: 20111222
  Receipt Date: 20111219
  Transmission Date: 20120403
  Serious: Yes (Death)
  Sender: FDA-Public Use
  Company Number: IT-JNJFOC-20111209152

PATIENT
  Age: 62 Year
  Sex: Female

DRUGS (14)
  1. BORTEZOMIB [Suspect]
     Route: 042
  2. THALIDOMIDE [Suspect]
     Route: 065
  3. DEXAMETHASONE [Suspect]
     Indication: MULTIPLE MYELOMA
     Route: 042
  4. BORTEZOMIB [Suspect]
     Route: 042
  5. THALIDOMIDE [Suspect]
     Indication: MULTIPLE MYELOMA
     Route: 065
  6. CYCLOPHOSPHAMIDE [Suspect]
     Indication: MULTIPLE MYELOMA
     Route: 065
  7. DEXAMETHASONE [Suspect]
     Route: 042
  8. DEXAMETHASONE [Suspect]
     Route: 042
  9. THALIDOMIDE [Suspect]
     Route: 065
  10. DEXAMETHASONE [Suspect]
     Route: 042
  11. DOXORUBICIN HCL [Suspect]
     Indication: MULTIPLE MYELOMA
     Route: 042
  12. BORTEZOMIB [Suspect]
     Indication: MULTIPLE MYELOMA
     Route: 042
  13. BORTEZOMIB [Suspect]
     Route: 042
  14. CYTARABINE [Suspect]
     Indication: MULTIPLE MYELOMA
     Route: 037

REACTIONS (4)
  - PARAESTHESIA [None]
  - CONFUSIONAL STATE [None]
  - DEATH [None]
  - CONVULSION [None]
